FAERS Safety Report 18588804 (Version 1)
Quarter: 2020Q4

REPORT INFORMATION
  Report Type: Spontaneous
  Country: MY (occurrence: JP)
  Receive Date: 20201207
  Receipt Date: 20201207
  Transmission Date: 20210114
  Serious: No
  Sender: FDA-Public Use
  Company Number: MY-LUPIN PHARMACEUTICALS INC.-2020-08182

PATIENT
  Age: 19 Year
  Sex: Female
  Weight: 58 kg

DRUGS (3)
  1. CARBAMAZEPINE. [Interacting]
     Active Substance: CARBAMAZEPINE
     Indication: SEIZURE
     Dosage: 6000 MILLIGRAM, UNK
     Route: 065
  2. LAMOTRIGINE. [Suspect]
     Active Substance: LAMOTRIGINE
     Indication: SEIZURE
     Dosage: 300 MILLIGRAM, UNK
     Route: 065
  3. PERAMPANEL [Interacting]
     Active Substance: PERAMPANEL
     Indication: SEIZURE
     Dosage: 6 MILLIGRAM/KILOGRAM
     Route: 065

REACTIONS (3)
  - Drug interaction [Unknown]
  - Dizziness [Unknown]
  - Drug level decreased [Recovered/Resolved]
